FAERS Safety Report 21998791 (Version 7)
Quarter: 2024Q3

REPORT INFORMATION
  Report Type: Report from Study
  Country: JP (occurrence: JP)
  Receive Date: 20230216
  Receipt Date: 20240724
  Transmission Date: 20241017
  Serious: Yes (Other)
  Sender: ARGENX BVBA
  Company Number: JP-ARGENX-2023-ARGX-JP000406

PATIENT
  Sex: Female
  Weight: 52 kg

DRUGS (50)
  1. EFGARTIGIMOD ALFA [Suspect]
     Active Substance: EFGARTIGIMOD ALFA
     Indication: Myasthenia gravis
     Dosage: 400 MG
     Route: 042
     Dates: start: 20220629, end: 20220720
  2. EFGARTIGIMOD ALFA [Suspect]
     Active Substance: EFGARTIGIMOD ALFA
     Dosage: 400 MG
     Route: 042
     Dates: start: 20230705, end: 20230726
  3. EFGARTIGIMOD ALFA [Suspect]
     Active Substance: EFGARTIGIMOD ALFA
     Dosage: 400 MG
     Route: 042
     Dates: start: 20231018, end: 20231025
  4. EFGARTIGIMOD ALFA [Suspect]
     Active Substance: EFGARTIGIMOD ALFA
     Dosage: 400 MG
     Route: 042
     Dates: start: 20231108, end: 20231108
  5. EFGARTIGIMOD ALFA [Suspect]
     Active Substance: EFGARTIGIMOD ALFA
     Dosage: 400 MG
     Route: 042
     Dates: start: 20240403, end: 20240424
  6. PREDNISOLONE [Concomitant]
     Active Substance: PREDNISOLONE
     Indication: Myasthenia gravis
     Dosage: 9 MG
     Route: 048
     Dates: start: 20220518, end: 20230131
  7. PREDNISOLONE [Concomitant]
     Active Substance: PREDNISOLONE
     Dosage: 5 MG
     Route: 048
     Dates: start: 20220622
  8. PREDNISOLONE [Concomitant]
     Active Substance: PREDNISOLONE
     Dosage: 10 MG
     Route: 065
  9. PREDNISOLONE [Concomitant]
     Active Substance: PREDNISOLONE
     Dosage: 15 MG
     Route: 065
  10. PREDNISOLONE [Concomitant]
     Active Substance: PREDNISOLONE
     Dosage: UNK
     Route: 065
  11. PREDNISOLONE [Concomitant]
     Active Substance: PREDNISOLONE
     Dosage: 4 MG
     Route: 048
     Dates: start: 20211020
  12. PREDNISOLONE [Concomitant]
     Active Substance: PREDNISOLONE
     Dosage: 8 MG
     Route: 048
     Dates: start: 20230201, end: 20230725
  13. PREDNISOLONE [Concomitant]
     Active Substance: PREDNISOLONE
     Dosage: 7 MG
     Route: 048
     Dates: start: 20230726, end: 20230822
  14. PREDNISOLONE [Concomitant]
     Active Substance: PREDNISOLONE
     Dosage: 6 MG
     Route: 048
     Dates: start: 20230823, end: 20231017
  15. PREDNISOLONE [Concomitant]
     Active Substance: PREDNISOLONE
     Dosage: 5 MG
     Route: 048
     Dates: start: 20231018
  16. TACROLIMUS [Concomitant]
     Active Substance: TACROLIMUS
     Indication: Myasthenia gravis
     Dosage: 3 MG
     Route: 048
     Dates: start: 20220518
  17. MESTINON [Concomitant]
     Active Substance: PYRIDOSTIGMINE BROMIDE
     Indication: Myasthenia gravis
     Dosage: 180 MG
     Route: 048
     Dates: start: 20220518
  18. HERCEPTIN [Suspect]
     Active Substance: TRASTUZUMAB
     Indication: Breast cancer
     Dosage: 415 MG
     Route: 041
     Dates: start: 20230119, end: 20230119
  19. HERCEPTIN [Suspect]
     Active Substance: TRASTUZUMAB
     Dosage: 320 MG
     Route: 041
     Dates: start: 20230214, end: 20230214
  20. HERCEPTIN [Suspect]
     Active Substance: TRASTUZUMAB
     Dosage: 320 MG
     Route: 041
     Dates: start: 20230307, end: 20230307
  21. HERCEPTIN [Suspect]
     Active Substance: TRASTUZUMAB
     Dosage: 320 MG
     Route: 041
     Dates: start: 20230328, end: 20230328
  22. HERCEPTIN [Suspect]
     Active Substance: TRASTUZUMAB
     Dosage: 310 MG
     Route: 041
     Dates: start: 20230711, end: 20230711
  23. HERCEPTIN [Suspect]
     Active Substance: TRASTUZUMAB
     Dosage: 310 MG
     Route: 041
     Dates: start: 20230801, end: 20230801
  24. HERCEPTIN [Suspect]
     Active Substance: TRASTUZUMAB
     Dosage: 310 MG
     Route: 041
     Dates: start: 20230822, end: 20230822
  25. HERCEPTIN [Suspect]
     Active Substance: TRASTUZUMAB
     Dosage: 315 MG
     Route: 041
     Dates: start: 20230912, end: 20230912
  26. HERCEPTIN [Suspect]
     Active Substance: TRASTUZUMAB
     Dosage: 315 MG
     Route: 041
     Dates: start: 20231003, end: 20231003
  27. HERCEPTIN [Suspect]
     Active Substance: TRASTUZUMAB
     Dosage: 315 MG
     Route: 041
     Dates: start: 20231114, end: 20231114
  28. HERCEPTIN [Suspect]
     Active Substance: TRASTUZUMAB
     Dosage: 315 MG
     Route: 041
     Dates: start: 20231205, end: 20231205
  29. HERCEPTIN [Suspect]
     Active Substance: TRASTUZUMAB
     Dosage: 315 MG
     Route: 041
     Dates: start: 20231226, end: 20231226
  30. HERCEPTIN [Suspect]
     Active Substance: TRASTUZUMAB
     Dosage: 315 MG
     Route: 041
     Dates: start: 20240116
  31. HERCEPTIN [Suspect]
     Active Substance: TRASTUZUMAB
     Dosage: 315 MG
     Route: 041
     Dates: start: 20240206
  32. HERCEPTIN [Suspect]
     Active Substance: TRASTUZUMAB
     Dosage: 315 MG
     Route: 041
     Dates: start: 20240227
  33. HERCEPTIN [Suspect]
     Active Substance: TRASTUZUMAB
     Dosage: 315 MG
     Route: 041
     Dates: start: 20240319, end: 20240319
  34. PERJETA [Suspect]
     Active Substance: PERTUZUMAB
     Indication: Breast cancer
     Dosage: 840 MG
     Route: 041
     Dates: start: 20230119, end: 20230119
  35. PERJETA [Suspect]
     Active Substance: PERTUZUMAB
     Dosage: 420 MG
     Route: 041
     Dates: start: 20230214, end: 20230214
  36. PERJETA [Suspect]
     Active Substance: PERTUZUMAB
     Dosage: 420 MG
     Route: 041
     Dates: start: 20230307, end: 20230307
  37. PERJETA [Suspect]
     Active Substance: PERTUZUMAB
     Dosage: 420 MG
     Route: 041
     Dates: start: 20230328, end: 20230328
  38. DOCETAXEL [Suspect]
     Active Substance: DOCETAXEL\DOCETAXEL ANHYDROUS
     Indication: Breast cancer
     Dosage: 110 MG
     Route: 041
     Dates: start: 20230119, end: 20230119
  39. DOCETAXEL [Suspect]
     Active Substance: DOCETAXEL\DOCETAXEL ANHYDROUS
     Dosage: 90 MG
     Route: 041
     Dates: start: 20230214, end: 20230214
  40. DOCETAXEL [Suspect]
     Active Substance: DOCETAXEL\DOCETAXEL ANHYDROUS
     Dosage: 90 MG
     Route: 041
     Dates: start: 20230307, end: 20230307
  41. DOCETAXEL [Suspect]
     Active Substance: DOCETAXEL\DOCETAXEL ANHYDROUS
     Dosage: 90 MG
     Route: 041
     Dates: start: 20230328, end: 20230328
  42. GRANISETRON [Suspect]
     Active Substance: GRANISETRON
     Indication: Breast cancer
     Dosage: 1 MG
     Route: 041
     Dates: start: 20230119, end: 20230119
  43. GRANISETRON [Suspect]
     Active Substance: GRANISETRON
     Dosage: 1 MG
     Route: 041
     Dates: start: 20230214, end: 20230214
  44. GRANISETRON [Suspect]
     Active Substance: GRANISETRON
     Dosage: 1 MG
     Route: 041
     Dates: start: 20230307, end: 20230307
  45. GRANISETRON [Suspect]
     Active Substance: GRANISETRON
     Dosage: 1 MG
     Route: 041
     Dates: start: 20230328, end: 20230328
  46. DEXAMETHASONE SODIUM PHOSPHATE [Suspect]
     Active Substance: DEXAMETHASONE PHOSPHATE\DEXAMETHASONE SODIUM PHOSPHATE
     Indication: Breast cancer
     Dosage: 6.6 MG
     Route: 041
     Dates: start: 20230119, end: 20230119
  47. DEXAMETHASONE SODIUM PHOSPHATE [Suspect]
     Active Substance: DEXAMETHASONE PHOSPHATE\DEXAMETHASONE SODIUM PHOSPHATE
     Dosage: 6.6 MG
     Route: 041
     Dates: start: 20230214, end: 20230214
  48. DEXAMETHASONE SODIUM PHOSPHATE [Suspect]
     Active Substance: DEXAMETHASONE PHOSPHATE\DEXAMETHASONE SODIUM PHOSPHATE
     Dosage: 6.6 MG
     Route: 041
     Dates: start: 20230307, end: 20230307
  49. DEXAMETHASONE SODIUM PHOSPHATE [Suspect]
     Active Substance: DEXAMETHASONE PHOSPHATE\DEXAMETHASONE SODIUM PHOSPHATE
     Dosage: 6.6 MG
     Route: 041
     Dates: start: 20230328, end: 20230328
  50. LENOGRASTIM [Suspect]
     Active Substance: LENOGRASTIM
     Indication: Breast cancer
     Dosage: 100 UG
     Route: 058
     Dates: start: 20230130, end: 20230201

REACTIONS (6)
  - Neutropenia [Recovered/Resolved]
  - Myasthenia gravis [Unknown]
  - Myasthenia gravis [Recovering/Resolving]
  - Myasthenia gravis [Recovering/Resolving]
  - Myasthenia gravis [Recovered/Resolved]
  - Product dose omission issue [Unknown]

NARRATIVE: CASE EVENT DATE: 20230130
